FAERS Safety Report 6137014-X (Version None)
Quarter: 2009Q1

REPORT INFORMATION
  Report Type: 
  Country: None (occurrence: None)
  Receive Date: 20090330
  Receipt Date: 20090317
  Transmission Date: 20090719
  Serious: Yes (Other)
  Sender: FDA-Public Use
  Company Number: US-PFIZER INC-2006102227

PATIENT
  Sex: Female

DRUGS (19)
  1. PROVERA [Suspect]
     Indication: HORMONE REPLACEMENT THERAPY
     Dosage: 2.5 MG, UNK
     Route: 048
     Dates: start: 19850101, end: 19931001
  2. PROVERA [Suspect]
     Dosage: 2.5 MG, UNK
     Dates: start: 20000401, end: 20000701
  3. MEDROXYPROGESTERONE AND MEDROXYPROGESTERONE ACETATE [Suspect]
     Indication: HORMONE REPLACEMENT THERAPY
     Dosage: 10 MG, UNK
     Route: 048
     Dates: start: 19940601
  4. MEDROXYPROGESTERONE AND MEDROXYPROGESTERONE ACETATE [Suspect]
     Dosage: 2.5 MG, UNK
     Dates: start: 19931001, end: 20020801
  5. PREMARIN [Suspect]
     Indication: HORMONE REPLACEMENT THERAPY
     Dosage: 0.625 MG, UNK
     Route: 065
     Dates: start: 19850101, end: 19970801
  6. PREMARIN [Suspect]
     Dosage: 0.625 MG, UNK
     Dates: start: 20010501, end: 20020801
  7. PREMARIN [Suspect]
     Dosage: 2.5 MG, UNK
     Dates: start: 20020501
  8. ESTRACE [Suspect]
     Indication: HORMONE REPLACEMENT THERAPY
     Route: 065
     Dates: start: 19840101, end: 20020827
  9. ESTRADIOL [Suspect]
     Indication: HORMONE REPLACEMENT THERAPY
     Route: 065
     Dates: start: 19840101, end: 20020827
  10. DEPO-PROVERA [Suspect]
     Indication: HORMONE REPLACEMENT THERAPY
  11. ATENOLOL [Concomitant]
     Dosage: UNK
     Dates: start: 19950601
  12. NIFEDIPINE [Concomitant]
     Dosage: UNK
     Dates: start: 20001001
  13. RELAFEN [Concomitant]
     Dosage: UNK
     Dates: start: 20020101, end: 20021201
  14. MEPROBAMATE [Concomitant]
     Dosage: UNK
     Dates: start: 19940101, end: 20030701
  15. ALPRAZOLAM [Concomitant]
     Dosage: UNK
     Dates: start: 19941101, end: 20021201
  16. ALLEGRA [Concomitant]
     Dosage: UNK
     Dates: start: 19921101, end: 20021201
  17. HYDROCODONE [Concomitant]
     Dosage: UNK
     Dates: start: 19970101, end: 20021201
  18. LEVOTHROID [Concomitant]
     Dosage: UNK
     Dates: start: 20020101, end: 20040601
  19. XANAX [Concomitant]
     Dosage: UNK
     Dates: start: 19920501, end: 20031001

REACTIONS (1)
  - BREAST CANCER [None]
